FAERS Safety Report 18927816 (Version 1)
Quarter: 2021Q1

REPORT INFORMATION
  Report Type: Spontaneous
  Country: US (occurrence: US)
  Receive Date: 20210223
  Receipt Date: 20210223
  Transmission Date: 20210420
  Serious: No
  Sender: FDA-Public Use
  Company Number: US-FERRINGPH-2020FE06455

PATIENT
  Age: 66 Year
  Sex: Female

DRUGS (1)
  1. DESMOPRESSIN [Suspect]
     Active Substance: DESMOPRESSIN
     Indication: VON WILLEBRAND^S DISEASE
     Dosage: 10 UG 2 SPRAYS ONE EACH NOSTRIL ONE HOUR PRIOR + AFTER SURGERY
     Route: 045
     Dates: start: 202006, end: 202006

REACTIONS (9)
  - Product use in unapproved indication [Recovered/Resolved]
  - Vomiting [Recovered/Resolved]
  - Recalled product administered [Recovered/Resolved]
  - Contusion [Recovered/Resolved]
  - Drug ineffective [Recovered/Resolved]
  - Out of specification product use [Recovered/Resolved]
  - Product prescribing error [Recovered/Resolved]
  - Nausea [Recovered/Resolved]
  - Procedural haemorrhage [Recovered/Resolved]

NARRATIVE: CASE EVENT DATE: 202006
